FAERS Safety Report 23674422 (Version 2)
Quarter: 2024Q2

REPORT INFORMATION
  Report Type: Spontaneous
  Country: BR (occurrence: BR)
  Receive Date: 20240326
  Receipt Date: 20240411
  Transmission Date: 20240715
  Serious: Yes (Hospitalization, Other)
  Sender: FDA-Public Use
  Company Number: BR-002147023-NVSC2024BR060723

PATIENT
  Age: 46 Year
  Sex: Female
  Weight: 70 kg

DRUGS (2)
  1. ELTROMBOPAG OLAMINE [Suspect]
     Active Substance: ELTROMBOPAG OLAMINE
     Indication: Aplastic anaemia
     Dosage: 3 DOSAGE FORM, QD,  (150 MG DAILY)
     Route: 065
     Dates: start: 202304
  2. ELTROMBOPAG OLAMINE [Suspect]
     Active Substance: ELTROMBOPAG OLAMINE
     Dosage: 3 DOSAGE FORM, QD,  (150 MG DAILY)
     Route: 065

REACTIONS (4)
  - Haemorrhage [Unknown]
  - Platelet count decreased [Unknown]
  - Red blood cell count decreased [Unknown]
  - Thrombosis [Unknown]

NARRATIVE: CASE EVENT DATE: 20240318
